FAERS Safety Report 14688992 (Version 1)
Quarter: 2018Q1

REPORT INFORMATION
  Report Type: Spontaneous
  Country: US (occurrence: US)
  Receive Date: 20180327
  Receipt Date: 20180327
  Transmission Date: 20180509
  Serious: Yes (Life-Threatening, Hospitalization, Disabling, Other)
  Sender: FDA-Public Use
  Company Number: None

PATIENT
  Age: 54 Year
  Sex: Female
  Weight: 86.18 kg

DRUGS (1)
  1. MIRENA [Suspect]
     Active Substance: LEVONORGESTREL

REACTIONS (10)
  - Swollen tongue [None]
  - Lymphadenopathy [None]
  - Head discomfort [None]
  - Blood pressure increased [None]
  - Optic neuritis [None]
  - Tinnitus [None]
  - Abdominal pain lower [None]
  - Visual impairment [None]
  - Sinusitis [None]
  - Eye pain [None]

NARRATIVE: CASE EVENT DATE: 20180327
